FAERS Safety Report 23217843 (Version 1)
Quarter: 2023Q4

REPORT INFORMATION
  Report Type: Spontaneous
  Country: RU (occurrence: RU)
  Receive Date: 20231122
  Receipt Date: 20231122
  Transmission Date: 20240110
  Serious: Yes (Other)
  Sender: FDA-Public Use
  Company Number: RU-PFIZER INC-PV202300186187

PATIENT
  Age: 72 Year
  Sex: Male

DRUGS (2)
  1. AXITINIB [Suspect]
     Active Substance: AXITINIB
     Indication: Clear cell renal cell carcinoma
     Dosage: 5 MG, 2X/DAY
     Dates: start: 20200803
  2. PEMBROLIZUMAB [Suspect]
     Active Substance: PEMBROLIZUMAB
     Indication: Renal cell carcinoma
     Dosage: 200 MG; ONCE EVERY 3 WEEKS
     Route: 042
     Dates: start: 20200803

REACTIONS (4)
  - Pulmonary fibrosis [Unknown]
  - Hypertension [Unknown]
  - Fatigue [Unknown]
  - Diarrhoea [Unknown]
